FAERS Safety Report 23160379 (Version 2)
Quarter: 2024Q1

REPORT INFORMATION
  Report Type: Spontaneous
  Country: US (occurrence: US)
  Receive Date: 20231108
  Receipt Date: 20240126
  Transmission Date: 20240410
  Serious: Yes (Hospitalization)
  Sender: FDA-Public Use
  Company Number: US-ANIPHARMA-2023-US-036614

PATIENT
  Sex: Female

DRUGS (1)
  1. CORTICOTROPIN [Suspect]
     Active Substance: CORTICOTROPIN
     Indication: Pulmonary sarcoidosis
     Dosage: 40 UNITS (0.5 ML) 2 TIMES A WEEK UNDER THE SKIN
     Route: 058
     Dates: start: 202308

REACTIONS (6)
  - Myalgia [Unknown]
  - Bone pain [Unknown]
  - Pneumonia [Unknown]
  - Gait inability [Unknown]
  - Contraindicated product administered [Not Recovered/Not Resolved]
  - Arthralgia [Unknown]
